FAERS Safety Report 24143481 (Version 2)
Quarter: 2024Q3

REPORT INFORMATION
  Report Type: Report from Study
  Country: US (occurrence: US)
  Receive Date: 20240727
  Receipt Date: 20240731
  Transmission Date: 20241016
  Serious: Yes (Death)
  Sender: ABBVIE
  Company Number: US-ABBVIE-5855589

PATIENT
  Sex: Female

DRUGS (1)
  1. CREON [Suspect]
     Active Substance: PANCRELIPASE AMYLASE\PANCRELIPASE LIPASE\PANCRELIPASE PROTEASE
     Indication: Renal failure
     Dosage: UNKNOWN
     Route: 048
     Dates: start: 2021

REACTIONS (3)
  - Death [Fatal]
  - Dialysis [Unknown]
  - Unevaluable event [Unknown]
